FAERS Safety Report 9019733 (Version 18)
Quarter: 2015Q1

REPORT INFORMATION
  Report Type: Report from Study
  Country: CA (occurrence: CA)
  Receive Date: 20130117
  Receipt Date: 20150225
  Transmission Date: 20150721
  Serious: Yes (Hospitalization, Other)
  Sender: FDA-Public Use
  Company Number: CA-ROCHE-1175127

PATIENT
  Age: 65 Year
  Sex: Female
  Weight: 80 kg

DRUGS (10)
  1. ACETAMINOPHEN. [Concomitant]
     Active Substance: ACETAMINOPHEN
     Route: 048
     Dates: start: 20150115
  2. METHYLPREDNISOLONE. [Concomitant]
     Active Substance: METHYLPREDNISOLONE
     Route: 042
     Dates: start: 20150115
  3. PREDNISONE. [Suspect]
     Active Substance: PREDNISONE
     Indication: PRODUCT USED FOR UNKNOWN INDICATION
     Route: 048
  4. SPIRONOLACTONE. [Concomitant]
     Active Substance: SPIRONOLACTONE
  5. FOLIC ACID. [Concomitant]
     Active Substance: FOLIC ACID
  6. ACTEMRA [Suspect]
     Active Substance: TOCILIZUMAB
     Indication: RHEUMATOID ARTHRITIS
     Route: 042
     Dates: start: 20120215, end: 20140128
  7. RITUXAN [Suspect]
     Active Substance: RITUXIMAB
     Indication: RHEUMATOID ARTHRITIS
     Dosage: DAY1,15
     Route: 042
     Dates: start: 20150115
  8. DIPHENHYDRAMINE HYDROCHLORIDE. [Concomitant]
     Active Substance: DIPHENHYDRAMINE HYDROCHLORIDE
     Indication: PREMEDICATION
     Route: 048
     Dates: start: 20150115
  9. MELOXICAM. [Concomitant]
     Active Substance: MELOXICAM
  10. METHOTREXATE [Concomitant]
     Active Substance: METHOTREXATE
     Route: 058

REACTIONS (20)
  - Cough [Not Recovered/Not Resolved]
  - Chronic obstructive pulmonary disease [Unknown]
  - Oropharyngeal pain [Not Recovered/Not Resolved]
  - Uvulitis [Recovered/Resolved]
  - Infusion related reaction [Unknown]
  - Pruritus [Unknown]
  - Immune system disorder [Not Recovered/Not Resolved]
  - Arthralgia [Not Recovered/Not Resolved]
  - Cataract operation [Recovered/Resolved]
  - Blood pressure diastolic abnormal [Unknown]
  - Treatment failure [Unknown]
  - Full blood count decreased [Unknown]
  - White blood cell count decreased [Unknown]
  - Pneumonia [Unknown]
  - Atrial fibrillation [Unknown]
  - Bursitis [Recovering/Resolving]
  - Hypotension [Unknown]
  - Pharyngitis [Not Recovered/Not Resolved]
  - Weight decreased [Unknown]
  - Insomnia [Unknown]

NARRATIVE: CASE EVENT DATE: 201209
